FAERS Safety Report 16136413 (Version 1)
Quarter: 2019Q1

REPORT INFORMATION
  Report Type: Spontaneous
  Country: CA (occurrence: CA)
  Receive Date: 20190329
  Receipt Date: 20190329
  Transmission Date: 20190418
  Serious: Yes (Life-Threatening, Other)
  Sender: FDA-Public Use
  Company Number: CA-SHIRE-CA201909591

PATIENT

DRUGS (1)
  1. VYVANSE [Suspect]
     Active Substance: LISDEXAMFETAMINE DIMESYLATE
     Indication: ATTENTION DEFICIT/HYPERACTIVITY DISORDER
     Dosage: 100 MILLIGRAM, 2X50 MG
     Route: 048
     Dates: start: 2013

REACTIONS (8)
  - Feeling abnormal [Unknown]
  - Inappropriate schedule of product administration [Unknown]
  - Weight decreased [Unknown]
  - Off label use [Unknown]
  - Overdose [Unknown]
  - Suicidal behaviour [Unknown]
  - Eating disorder [Unknown]
  - Stress [Unknown]
